FAERS Safety Report 16997985 (Version 1)
Quarter: 2019Q4

REPORT INFORMATION
  Report Type: Spontaneous
  Country: IT (occurrence: IT)
  Receive Date: 20191106
  Receipt Date: 20191106
  Transmission Date: 20200122
  Serious: Yes (Other)
  Sender: FDA-Public Use
  Company Number: IT-SAMSUNG BIOEPIS-SB-2019-17332

PATIENT
  Age: 27 Year
  Sex: Male

DRUGS (1)
  1. INFLIXIMAB [Suspect]
     Active Substance: INFLIXIMAB
     Indication: COLITIS
     Dosage: DOSAGE FORM: LYOPHILIZED POWDER
     Route: 042
     Dates: start: 20160601, end: 20180911

REACTIONS (8)
  - Asthenia [Unknown]
  - Pyrexia [Unknown]
  - Defaecation urgency [Unknown]
  - Colitis ulcerative [Unknown]
  - Product use in unapproved indication [Unknown]
  - Diarrhoea haemorrhagic [Unknown]
  - Drug ineffective [Unknown]
  - Colitis [Unknown]

NARRATIVE: CASE EVENT DATE: 20180911
